FAERS Safety Report 9470004 (Version 3)
Quarter: 2013Q4

REPORT INFORMATION
  Report Type: Spontaneous
  Country: US (occurrence: US)
  Receive Date: 20130822
  Receipt Date: 20131114
  Transmission Date: 20140711
  Serious: Yes (Other)
  Sender: FDA-Public Use
  Company Number: US-NAPPMUNDI-USA-2012-0086105

PATIENT
  Age: 55 Year
  Sex: Male
  Weight: 82.99 kg

DRUGS (8)
  1. OXYCONTIN (NDA 22-272) [Suspect]
     Indication: PAIN
     Dosage: 80 MG, BID
     Route: 048
     Dates: start: 2010, end: 20120504
  2. OXYCONTIN (NDA 22-272) [Suspect]
     Indication: NECK PAIN
     Dosage: 80 MG, BID
     Route: 048
     Dates: start: 20120504
  3. OXYCONTIN (NDA 22-272) [Suspect]
     Indication: MUSCULOSKELETAL PAIN
     Dosage: 80 MG, BID
     Route: 048
     Dates: start: 20120906
  4. OXYCONTIN (NDA 22-272) [Suspect]
     Dosage: 80 MG, BID
     Route: 048
     Dates: start: 20120504, end: 20130712
  5. BUSPIRON                           /00791501/ [Concomitant]
     Indication: PRODUCT USED FOR UNKNOWN INDICATION
     Dosage: 15 MG, PRN
  6. CYCLOBENZAPRINE [Concomitant]
     Indication: PRODUCT USED FOR UNKNOWN INDICATION
     Dosage: 10 MG, PRN
  7. DIAZEPAM [Concomitant]
     Indication: PRODUCT USED FOR UNKNOWN INDICATION
     Dosage: 5 MG, PRN
  8. HYDROCODONE W/ACETAMINOPHEN [Concomitant]
     Indication: PRODUCT USED FOR UNKNOWN INDICATION
     Dosage: 10-325

REACTIONS (9)
  - Tooth loss [Unknown]
  - Tooth deposit [Not Recovered/Not Resolved]
  - Tooth disorder [Not Recovered/Not Resolved]
  - Sleep disorder [Unknown]
  - Oral discomfort [Not Recovered/Not Resolved]
  - Choking [Unknown]
  - Dry mouth [Not Recovered/Not Resolved]
  - Dental caries [Not Recovered/Not Resolved]
  - Oral discharge [Not Recovered/Not Resolved]
